FAERS Safety Report 13748350 (Version 1)
Quarter: 2017Q3

REPORT INFORMATION
  Report Type: Spontaneous
  Country: DE (occurrence: DE)
  Receive Date: 20170713
  Receipt Date: 20170713
  Transmission Date: 20171127
  Serious: Yes (Hospitalization, Other)
  Sender: FDA-Public Use
  Company Number: DE-ABBVIE-17K-062-2031499-00

PATIENT
  Sex: Female

DRUGS (21)
  1. OLANZAPIN [Suspect]
     Active Substance: OLANZAPINE
     Indication: PRODUCT USED FOR UNKNOWN INDICATION
     Route: 065
  2. VITAMINE B12 [Suspect]
     Active Substance: CYANOCOBALAMIN
     Indication: PRODUCT USED FOR UNKNOWN INDICATION
     Route: 065
  3. PREDNISOLON ACIS [Suspect]
     Active Substance: PREDNISOLONE
     Indication: PSORIASIS
     Route: 065
     Dates: start: 20160324, end: 20160326
  4. PREDNISOLON ACIS [Suspect]
     Active Substance: PREDNISOLONE
     Route: 065
     Dates: start: 20160327, end: 20160329
  5. PREDNISOLON ACIS [Suspect]
     Active Substance: PREDNISOLONE
     Route: 065
     Dates: start: 20160330, end: 20160401
  6. DEKRISTOL [Suspect]
     Active Substance: CHOLECALCIFEROL
     Indication: PRODUCT USED FOR UNKNOWN INDICATION
     Route: 065
  7. DEKRISTOL [Suspect]
     Active Substance: CHOLECALCIFEROL
     Route: 065
  8. OTEZLA [Suspect]
     Active Substance: APREMILAST
     Indication: PSORIASIS
     Dosage: 10/20/30 MG
     Route: 065
     Dates: start: 20150903, end: 20150916
  9. MTX [Suspect]
     Active Substance: METHOTREXATE SODIUM
     Indication: PSORIASIS
     Route: 065
  10. HUMIRA [Suspect]
     Active Substance: ADALIMUMAB
     Indication: PSORIASIS
     Route: 058
     Dates: start: 20130801, end: 20150618
  11. CEFIXDURA [Suspect]
     Active Substance: CEFIXIME
     Indication: PRODUCT USED FOR UNKNOWN INDICATION
     Dosage: PACKAGE WITH 10 TABLETS
     Route: 065
  12. FUMADERM [Suspect]
     Active Substance: CALCIUM MONOETHYLFUMARATE\DIMETHYL FUMARATE\MAGNESIUM MONOETHYLFUMARATE\ZINC MONOETHYLFUMARATE
     Indication: PSORIASIS
     Dosage: 4 TIMES
     Route: 065
  13. AZITHROMYCIN/TEVA [Suspect]
     Active Substance: AZITHROMYCIN
     Indication: PHARYNGITIS
     Route: 065
     Dates: start: 20160410, end: 20160413
  14. PANTOZOL [Suspect]
     Active Substance: PANTOPRAZOLE SODIUM
     Indication: PRODUCT USED FOR UNKNOWN INDICATION
     Route: 065
  15. VENLAFAXIN [Suspect]
     Active Substance: VENLAFAXINE HYDROCHLORIDE
     Indication: PRODUCT USED FOR UNKNOWN INDICATION
     Route: 065
  16. PREDNISOLON ACIS [Suspect]
     Active Substance: PREDNISOLONE
     Dosage: PACKAGE WITH 100 TABLETS
     Route: 065
     Dates: start: 20160414
  17. DOMINAL (PROTHIPENDYL HYDROCHLORIDE) [Suspect]
     Active Substance: PROTHIPENDYL HYDROCHLORIDE
     Indication: PRODUCT USED FOR UNKNOWN INDICATION
     Route: 065
  18. OTEZLA [Suspect]
     Active Substance: APREMILAST
     Route: 065
     Dates: start: 20150917, end: 20160324
  19. TRIAMGALEN [Suspect]
     Active Substance: TRIAMCINOLONE ACETONIDE
     Indication: PSORIASIS
     Dosage: 0.1%
     Route: 061
  20. DOXYCYCLIN AL [Suspect]
     Active Substance: DOXYCYCLINE HYCLATE
     Indication: PHARYNGITIS
     Route: 065
     Dates: start: 20160406, end: 20160410
  21. STELARA [Suspect]
     Active Substance: USTEKINUMAB
     Indication: PSORIASIS
     Route: 065
     Dates: start: 20160927, end: 20160927

REACTIONS (34)
  - Stomatitis [Unknown]
  - Abdominal pain upper [Unknown]
  - Psoriasis [Unknown]
  - Psoriasis [Unknown]
  - Pharyngeal inflammation [Unknown]
  - Fall [Unknown]
  - Insomnia [Unknown]
  - Oedema peripheral [Unknown]
  - Arthralgia [Unknown]
  - Tinnitus [Recovered/Resolved]
  - Nasal congestion [Unknown]
  - Dry mouth [Unknown]
  - Nausea [Unknown]
  - Nasal dryness [Unknown]
  - Mouth swelling [Unknown]
  - Chills [Unknown]
  - Somnolence [Unknown]
  - Sensitivity to weather change [Unknown]
  - Rhinorrhoea [Unknown]
  - Photosensitivity reaction [Unknown]
  - Vomiting [Recovered/Resolved]
  - Hypersensitivity [Unknown]
  - Erythema [Unknown]
  - Myalgia [Unknown]
  - Dizziness [Unknown]
  - Thirst [Unknown]
  - Pain in extremity [Unknown]
  - Musculoskeletal pain [Recovered/Resolved]
  - Pulpitis dental [Unknown]
  - Back pain [Unknown]
  - Hypoacusis [Not Recovered/Not Resolved]
  - Mood altered [Recovered/Resolved]
  - Liver function test increased [Recovered/Resolved]
  - Burning sensation [Unknown]

NARRATIVE: CASE EVENT DATE: 2016
